FAERS Safety Report 25864705 (Version 1)
Quarter: 2025Q3

REPORT INFORMATION
  Report Type: Spontaneous
  Country: US (occurrence: None)
  Receive Date: 20250929
  Receipt Date: 20250929
  Transmission Date: 20251021
  Serious: No
  Sender: FDA-CTU
  Company Number: None

PATIENT
  Sex: Female

DRUGS (1)
  1. COSENTYX [Suspect]
     Active Substance: SECUKINUMAB
     Indication: Hidradenitis
     Route: 048
     Dates: start: 20250711

REACTIONS (6)
  - Rash [None]
  - Muscular weakness [None]
  - Depression [None]
  - Drug ineffective [None]
  - Vomiting [None]
  - Suicidal ideation [None]
